FAERS Safety Report 5917722-3 (Version None)
Quarter: 2008Q4

REPORT INFORMATION
  Report Type: 
  Country: None (occurrence: None)
  Receive Date: 20081009
  Receipt Date: 20080925
  Transmission Date: 20090506
  Serious: Yes (Hospitalization)
  Sender: FDA-Public Use
  Company Number: US024733

PATIENT
  Age: 71 Year
  Sex: Male

DRUGS (10)
  1. ACTIQ [Suspect]
     Indication: PAIN
     Dosage: 600 UG TID BUCCAL
     Route: 002
  2. DURAGESIC-100 [Suspect]
     Dosage: 100 UG Q1HR TRANSDERMAL
     Route: 062
  3. PRAVASTATIN [Concomitant]
  4. ATENOLOL [Concomitant]
  5. KARDEGIC [Concomitant]
  6. XATRAL [Concomitant]
  7. ATARAX [Concomitant]
  8. ZOLPIDEM [Concomitant]
  9. OGAST [Concomitant]
  10. STRESAM [Concomitant]

REACTIONS (6)
  - BLOOD PRESSURE SYSTOLIC INCREASED [None]
  - COGNITIVE DISORDER [None]
  - CONDITION AGGRAVATED [None]
  - DIZZINESS [None]
  - MALAISE [None]
  - MEDICATION ERROR [None]
